FAERS Safety Report 6169635-2 (Version None)
Quarter: 2009Q2

REPORT INFORMATION
  Report Type: 
  Country: None (occurrence: None)
  Receive Date: 20090428
  Receipt Date: 20090416
  Transmission Date: 20091009
  Serious: Yes (Other)
  Sender: FDA-Public Use
  Company Number: BR-BAYER-200915321LA

PATIENT
  Age: 31 Year
  Sex: Female
  Weight: 65 kg

DRUGS (4)
  1. YASMIN [Suspect]
     Indication: CONTRACEPTION
     Route: 048
     Dates: start: 20090408, end: 20090414
  2. DORIL [Concomitant]
     Indication: HEADACHE
     Dosage: 6H/6H
     Route: 048
     Dates: start: 20090413
  3. DIPIRONA [Concomitant]
     Indication: HEADACHE
     Dosage: 6H/6H   (38 TO 40 DROPS)
     Route: 048
     Dates: start: 20090413
  4. PARACETAMOL [Concomitant]
     Indication: HEADACHE
     Dosage: 6H/6H
     Route: 048
     Dates: start: 20090413

REACTIONS (4)
  - BLINDNESS TRANSIENT [None]
  - HEADACHE [None]
  - SOMNOLENCE [None]
  - VISION BLURRED [None]
